FAERS Safety Report 6343603-X (Version None)
Quarter: 2009Q3

REPORT INFORMATION
  Report Type: 
  Country: None (occurrence: None)
  Receive Date: 20090908
  Receipt Date: 20090805
  Transmission Date: 20100115
  Serious: No
  Sender: FDA-Public Use
  Company Number: US-BAYER-200930178NA

PATIENT
  Age: 67 Year
  Sex: Female

DRUGS (10)
  1. ULTRAVIST PHARMACY BULK PACKAGE 370 [Suspect]
     Indication: ABDOMINAL PAIN LOWER
     Dosage: TOTAL DAILY DOSE: 120 ML  UNIT DOSE: 500 ML
     Route: 042
     Dates: start: 20090805, end: 20090805
  2. NEXIUM [Concomitant]
  3. PROCARDIA [Concomitant]
  4. PLAVIX [Concomitant]
  5. ISORBIDE [Concomitant]
  6. CRESTOR [Concomitant]
  7. AVAPRO [Concomitant]
  8. HYDROCHLOROTHIAZIDE [Concomitant]
  9. LASIX [Concomitant]
  10. KLOR-CON [Concomitant]

REACTIONS (2)
  - PRURITUS [None]
  - URTICARIA [None]
